FAERS Safety Report 18628379 (Version 1)
Quarter: 2020Q4

REPORT INFORMATION
  Report Type: Spontaneous
  Country: FR (occurrence: FR)
  Receive Date: 20201217
  Receipt Date: 20201217
  Transmission Date: 20210114
  Serious: Yes (Other)
  Sender: FDA-Public Use
  Company Number: NVSC2020FR335424

PATIENT

DRUGS (3)
  1. EVEROLIMUS. [Suspect]
     Active Substance: EVEROLIMUS
     Indication: PRODUCT USED FOR UNKNOWN INDICATION
     Dosage: 5 MG, QD
     Route: 065
  2. SORAFENIB [Suspect]
     Active Substance: SORAFENIB
     Indication: PRODUCT USED FOR UNKNOWN INDICATION
     Dosage: 200 MG, BID
     Route: 065
  3. SORAFENIB [Suspect]
     Active Substance: SORAFENIB
     Dosage: UNK (GIVEN LATER WITH EVEROLIMUS)
     Route: 065

REACTIONS (1)
  - Toxicity to various agents [Unknown]
